FAERS Safety Report 5072718-1 (Version None)
Quarter: 2006Q3

REPORT INFORMATION
  Report Type: 
  Country: None (occurrence: None)
  Receive Date: 20060807
  Receipt Date: 20060801
  Transmission Date: 20061208
  Serious: Yes (Death)
  Sender: FDA-Public Use
  Company Number: IT-SANOFI-SYNTHELABO-A06200600259

PATIENT
  Sex: Male

DRUGS (3)
  1. FLUOROURACIL TEVA [Suspect]
     Indication: COLON CANCER
     Route: 040
     Dates: start: 20060613, end: 20060613
  2. FLUOROURACIL TEVA [Suspect]
     Route: 041
     Dates: start: 20060613, end: 20060615
  3. ELOXATIN [Suspect]
     Indication: COLON CANCER
     Route: 041
     Dates: start: 20060613, end: 20060613

REACTIONS (7)
  - DEHYDRATION [None]
  - DIARRHOEA [None]
  - LEUKOPENIA [None]
  - OESOPHAGITIS [None]
  - PYREXIA [None]
  - STOMATITIS [None]
  - THROMBOCYTOPENIA [None]
